FAERS Safety Report 6547856-4 (Version None)
Quarter: 2010Q1

REPORT INFORMATION
  Report Type: 
  Country: None (occurrence: None)
  Receive Date: 20100124
  Receipt Date: 20091106
  Transmission Date: 20100710
  Serious: No
  Sender: FDA-Public Use
  Company Number: US-ALEXION-A200900452

PATIENT
  Sex: Male

DRUGS (6)
  1. SOLIRIS [Suspect]
     Indication: PAROXYSMAL NOCTURNAL HAEMOGLOBINURIA
     Dosage: 600 MG, QW
     Route: 042
     Dates: start: 20080724, end: 20080801
  2. SOLIRIS [Suspect]
     Dosage: 900 MG, Q2W
     Route: 042
     Dates: start: 20080821, end: 20080918
  3. SOLIRIS [Suspect]
     Dosage: 900 MG, Q12D
     Route: 042
     Dates: start: 20080930, end: 20080101
  4. SOLIRIS [Suspect]
     Dosage: 900 MG, QW
     Route: 042
     Dates: start: 20081010, end: 20081031
  5. SOLIRIS [Suspect]
     Dosage: 1200 MG, Q2W
     Route: 042
     Dates: start: 20081107
  6. ANADROL [Suspect]

REACTIONS (1)
  - ASTHENIA [None]
